FAERS Safety Report 8777001 (Version 2)
Quarter: 2012Q4

REPORT INFORMATION
  Report Type: 
  Country: JP (occurrence: JP)
  Receive Date: 20120911
  Receipt Date: 20120918
  Transmission Date: 20130627
  Serious: Yes (Other)
  Sender: FDA-Public Use
  Company Number: JP-GLAXOSMITHKLINE-B0829103A

PATIENT
  Age: 87 Year
  Sex: Male

DRUGS (2)
  1. AVOLVE [Suspect]
     Indication: BENIGN PROSTATIC HYPERPLASIA
     Dosage: .5MG Per day
     Route: 048
     Dates: start: 20120905, end: 20120905
  2. UNKNOWN DRUG [Concomitant]
     Route: 048

REACTIONS (4)
  - Visual acuity reduced [Unknown]
  - Ocular hyperaemia [Unknown]
  - Eye pain [Unknown]
  - Dizziness [Unknown]
